FAERS Safety Report 10260119 (Version 1)
Quarter: 2014Q2

REPORT INFORMATION
  Report Type: Spontaneous
  Country: IL (occurrence: IL)
  Receive Date: 20140625
  Receipt Date: 20140625
  Transmission Date: 20141212
  Serious: Yes (Other)
  Sender: FDA-Public Use
  Company Number: IL-WATSON-2014-14137

PATIENT
  Age: 52 Year
  Sex: Male

DRUGS (5)
  1. METHYLPREDNISOLONE (UNKNOWN) [Suspect]
     Indication: EYE DISORDER
     Dosage: 500 MG, 1/WEEK
     Route: 042
  2. METHYLPREDNISOLONE (UNKNOWN) [Suspect]
     Dosage: 250 MG, 1/WEEK
     Route: 042
  3. ATORVASTATIN (UNKNOWN) [Suspect]
     Indication: HYPERLIPIDAEMIA
     Dosage: UNKNOWN
     Route: 065
  4. CIPROFIBRATE (UNKNOWN) [Suspect]
     Indication: HYPERLIPIDAEMIA
     Dosage: UNKNOWN
     Route: 065
  5. LEVOTHYROXINE [Concomitant]
     Indication: HYPOTHYROIDISM
     Dosage: UNKNOWN
     Route: 065

REACTIONS (2)
  - Drug-induced liver injury [Recovering/Resolving]
  - Arthralgia [Recovering/Resolving]
